FAERS Safety Report 14176027 (Version 1)
Quarter: 2017Q4

REPORT INFORMATION
  Report Type: Spontaneous
  Country: CO (occurrence: CO)
  Receive Date: 20171109
  Receipt Date: 20171109
  Transmission Date: 20180321
  Serious: Yes (Other)
  Sender: FDA-Public Use
  Company Number: CO-MYLANLABS-2017M1070187

PATIENT
  Age: 47 Year
  Sex: Male

DRUGS (3)
  1. TACROLIMUS. [Suspect]
     Active Substance: TACROLIMUS
     Indication: IRIDOCYCLITIS
     Dosage: UNK
     Route: 065
     Dates: start: 201201
  2. CICLOSPORIN [Suspect]
     Active Substance: CYCLOSPORINE
     Indication: IRIDOCYCLITIS
     Dosage: UNK
     Route: 065
     Dates: start: 201201
  3. METHOTREXATE. [Suspect]
     Active Substance: METHOTREXATE
     Indication: IRIDOCYCLITIS
     Dosage: UNK
     Route: 065
     Dates: start: 2012

REACTIONS (3)
  - Iridocyclitis [Recovering/Resolving]
  - Ophthalmic herpes simplex [Recovering/Resolving]
  - Drug ineffective [Recovering/Resolving]
